FAERS Safety Report 22758977 (Version 4)
Quarter: 2023Q4

REPORT INFORMATION
  Report Type: Report from Study
  Country: TR (occurrence: None)
  Receive Date: 20230728
  Receipt Date: 20231016
  Transmission Date: 20240110
  Serious: Yes (Death, Hospitalization)
  Sender: FDA-Public Use
  Company Number: TR-ROCHE-3369540

PATIENT
  Age: 65 Year
  Sex: Male
  Weight: 67 kg

DRUGS (7)
  1. TIRAGOLUMAB [Suspect]
     Active Substance: TIRAGOLUMAB
     Indication: Lung adenocarcinoma
     Dosage: DATE OF MOST RECENT DOSE OF BLINDED TIRAGOLUMAB PRIOR TO ONSET OF AE AND SAE:23/MAY/2023
     Route: 042
     Dates: start: 20210729
  2. ATEZOLIZUMAB [Suspect]
     Active Substance: ATEZOLIZUMAB
     Indication: Lung adenocarcinoma
     Dosage: DATE OF MOST RECENT DOSE OF ATEZOLIZUMAB (1200 MG) PRIOR TO ONSET OF AE AND SAE:23/MAY/2023
     Route: 041
     Dates: start: 20210729
  3. PAROL [Concomitant]
     Active Substance: ACETAMINOPHEN
     Indication: Headache
     Route: 048
  4. DELTACORTRIL [Concomitant]
     Active Substance: PREDNISOLONE
     Indication: Adrenal insufficiency
     Route: 048
     Dates: start: 20221008
  5. LEVOTHYROXINE SODIUM [Concomitant]
     Active Substance: LEVOTHYROXINE SODIUM
     Indication: Hypothyroidism
     Route: 048
     Dates: start: 20220113
  6. MEROPENEM [Concomitant]
     Active Substance: MEROPENEM
     Indication: Pneumonia
     Route: 042
     Dates: start: 20230809, end: 20230814
  7. MEROPENEM [Concomitant]
     Active Substance: MEROPENEM
     Indication: Infection

REACTIONS (1)
  - Encephalitis autoimmune [Fatal]

NARRATIVE: CASE EVENT DATE: 20230609
